FAERS Safety Report 25689025 (Version 3)
Quarter: 2025Q4

REPORT INFORMATION
  Report Type: Spontaneous
  Country: US (occurrence: US)
  Receive Date: 20250818
  Receipt Date: 20251013
  Transmission Date: 20260118
  Serious: No
  Sender: CIPLA
  Company Number: US-CIPLA LTD.-2025US09951

PATIENT

DRUGS (6)
  1. LANREOTIDE ACETATE [Suspect]
     Active Substance: LANREOTIDE ACETATE
     Indication: Endocrine neoplasm malignant
     Dosage: 120 MILLIGRAM (EVERY MONTH) (STRENGTH: 120MG/0.5 ML)
     Route: 058
     Dates: start: 202304
  2. LANREOTIDE ACETATE [Suspect]
     Active Substance: LANREOTIDE ACETATE
     Dosage: 120 MILLIGRAM (EVERY MONTH) (STRENGTH: 120MG/0.5 ML)
     Route: 058
     Dates: start: 20250804
  3. LANREOTIDE ACETATE [Suspect]
     Active Substance: LANREOTIDE ACETATE
     Dosage: 120 MILLIGRAM (EVERY MONTH) (STRENGTH: 120MG/0.5 ML)(RESCHEDULED DOSE)
     Route: 058
     Dates: start: 20250807
  4. VITAMIN D3 [Concomitant]
     Active Substance: CHOLECALCIFEROL
     Indication: Product used for unknown indication
     Dosage: 25 MICROGRAM, QD
     Route: 065
  5. PANTOPRAZOLE [Concomitant]
     Active Substance: PANTOPRAZOLE
     Indication: Product used for unknown indication
     Dosage: 40 MICROGRAM, QD
     Route: 065
  6. CARAFATE [Concomitant]
     Active Substance: SUCRALFATE
     Indication: Product used for unknown indication
     Dosage: 1 GRAM, QD (BEFORE EACH MEAL AT NIGHT)
     Route: 065

REACTIONS (4)
  - Drug dose omission by device [Unknown]
  - Device mechanical issue [Unknown]
  - Product communication issue [Unknown]
  - Product quality issue [Unknown]

NARRATIVE: CASE EVENT DATE: 20250804
